FAERS Safety Report 24465318 (Version 1)
Quarter: 2024Q4

REPORT INFORMATION
  Report Type: Report from Study
  Country: US (occurrence: US)
  Receive Date: 20241018
  Receipt Date: 20241018
  Transmission Date: 20250115
  Serious: No
  Sender: ROCHE
  Company Number: US-ROCHE-3520169

PATIENT
  Age: 71 Year
  Sex: Female
  Weight: 200.0 kg

DRUGS (9)
  1. XOLAIR [Suspect]
     Active Substance: OMALIZUMAB
     Indication: Asthma
     Dosage: 150 MG/VAIL EVERY 2 WEEK AND FOUR VIALS EVERY 4 WEEK
     Route: 058
  2. AZITHROMYCIN [Concomitant]
     Active Substance: AZITHROMYCIN
  3. BREO ELLIPTA [Concomitant]
     Active Substance: FLUTICASONE FUROATE\VILANTEROL TRIFENATATE
  4. EPIPEN [Concomitant]
     Active Substance: EPINEPHRINE
  5. ALBUTEROL SULFATE [Concomitant]
     Active Substance: ALBUTEROL SULFATE
  6. CLARITIN [Concomitant]
     Active Substance: LORATADINE
  7. XYLITOL [Concomitant]
     Active Substance: XYLITOL
  8. HERBALS [Concomitant]
     Active Substance: HERBALS
  9. KEFLEX [Concomitant]
     Active Substance: CEPHALEXIN

REACTIONS (2)
  - Off label use [Unknown]
  - No adverse event [Unknown]
